FAERS Safety Report 9242385 (Version 3)
Quarter: 2013Q4

REPORT INFORMATION
  Report Type: Spontaneous
  Country: US (occurrence: US)
  Receive Date: 20130419
  Receipt Date: 20131114
  Transmission Date: 20140711
  Serious: Yes (Hospitalization, Other)
  Sender: FDA-Public Use
  Company Number: US-PFIZER INC-2013120133

PATIENT
  Age: 65 Year
  Sex: Female
  Weight: 79.37 kg

DRUGS (21)
  1. TOVIAZ [Suspect]
     Indication: HYPERTONIC BLADDER
     Dosage: 8 MG, 1X/DAY
     Dates: start: 2006
  2. TOVIAZ [Suspect]
     Indication: URINARY INCONTINENCE
     Dosage: 4 MG, 1X/DAY
  3. LYRICA [Suspect]
     Indication: NEUROPATHY PERIPHERAL
     Dosage: 50 MG, 4X/DAY
  4. LYRICA [Suspect]
     Dosage: 50 MG, 4X/DAY
     Route: 048
  5. FUROSEMIDE [Suspect]
     Indication: POLYURIA
     Dosage: 40 MG, DAILY
     Route: 048
  6. METOPROLOL TARTRATE [Suspect]
     Indication: CARDIAC DISORDER
     Dosage: 50 MG, 2X/DAY
     Route: 048
  7. IPRATROPIUM BROMIDE [Suspect]
     Indication: RHINORRHOEA
     Dosage: UNK
  8. CLONAZEPAM [Concomitant]
     Indication: SLEEP DISORDER
     Dosage: 1MG IN THE MORNING AND 3MG
  9. CLONAZEPAM [Concomitant]
     Indication: DEPRESSION
     Dosage: UNK, 2X/DAY
  10. LISINOPRIL [Concomitant]
     Indication: HYPERTENSION
     Dosage: 5 MG, DAILY
  11. LISINOPRIL [Concomitant]
     Dosage: 5 MG, 1X/DAY
  12. OMEPRAZOLE [Concomitant]
     Indication: GASTROOESOPHAGEAL REFLUX DISEASE
     Dosage: 20 MG, 2X/DAY
  13. HOMATROPINE/HYDROCODONE [Concomitant]
     Indication: COUGH
     Dosage: 5 ML, DAILY
  14. MIRTAZAPINE [Concomitant]
     Indication: SLEEP DISORDER
     Dosage: 30 MG, DAILY
  15. MIRTAZAPINE [Concomitant]
     Indication: DEPRESSION
  16. REQUIP XL [Concomitant]
     Indication: RESTLESS LEGS SYNDROME
     Dosage: 4 MG, 2X/DAY
  17. REQUIP XL [Concomitant]
     Dosage: 4 MG, 1X/DAY
  18. SERTRALINE HYDROCHLORIDE [Concomitant]
     Indication: DEPRESSION
     Dosage: 150 MG, DAILY
  19. SERTRALINE HYDROCHLORIDE [Concomitant]
     Dosage: 150 MG, 1X/DAY
  20. ZOLPIDEM TARTRATE [Concomitant]
     Indication: SLEEP DISORDER
     Dosage: 12.5 MG, DAILY
  21. AMPHETAMINE [Concomitant]
     Indication: DISTURBANCE IN ATTENTION
     Dosage: 20 MG, 2X/DAY

REACTIONS (7)
  - Cardiac failure congestive [Unknown]
  - Urinary retention [Unknown]
  - Dysuria [Unknown]
  - Drug ineffective [Unknown]
  - Blood cholesterol increased [Unknown]
  - Rhinorrhoea [Not Recovered/Not Resolved]
  - Drug dose omission [Unknown]
